FAERS Safety Report 10488238 (Version 2)
Quarter: 2014Q4

REPORT INFORMATION
  Report Type: Spontaneous
  Country: FR (occurrence: FR)
  Receive Date: 20141002
  Receipt Date: 20141015
  Transmission Date: 20150528
  Serious: Yes (Hospitalization, Other)
  Sender: FDA-Public Use
  Company Number: FR-AMGEN-FRASP2014075384

PATIENT
  Age: 59 Year
  Sex: Female
  Weight: 65 kg

DRUGS (1)
  1. NEULASTA [Suspect]
     Active Substance: PEGFILGRASTIM
     Indication: IDIOPATHIC NEUTROPENIA
     Dosage: 6 MG, 1 INJECTION EVERY 2 WEEKS
     Route: 058
     Dates: start: 20040412, end: 20131022

REACTIONS (3)
  - Myelofibrosis [Unknown]
  - Myelodysplastic syndrome [Not Recovered/Not Resolved]
  - Myeloproliferative disorder [Not Recovered/Not Resolved]

NARRATIVE: CASE EVENT DATE: 20130422
